FAERS Safety Report 4529897-1 (Version None)
Quarter: 2004Q4

REPORT INFORMATION
  Report Type: 
  Country: None (occurrence: None)
  Receive Date: 20041217
  Receipt Date: 20041208
  Transmission Date: 20050328
  Serious: Yes (Hospitalization)
  Sender: FDA-Public Use
  Company Number: JP-BRISTOL-MYERS SQUIBB COMPANY-12789400

PATIENT
  Age: 63 Year
  Sex: Female

DRUGS (1)
  1. KENACORT-A INJ [Suspect]
     Indication: MACULAR OEDEMA
     Route: 031
     Dates: start: 20040210, end: 20040210

REACTIONS (2)
  - ENDOPHTHALMITIS [None]
  - HYPOPYON [None]
